FAERS Safety Report 4358085-7 (Version None)
Quarter: 2004Q2

REPORT INFORMATION
  Report Type: 
  Country: None (occurrence: None)
  Receive Date: 20040510
  Receipt Date: 20040426
  Transmission Date: 20050107
  Serious: Yes (Other)
  Sender: FDA-Public Use
  Company Number: US-JNJFOC-20030900556

PATIENT
  Age: 74 Year
  Sex: Female
  Weight: 63.9572 kg

DRUGS (14)
  1. INFLIXIMAB (INFLIXIMAB, RECOMBINANT) LYOPHILIZED POWDER [Suspect]
     Indication: RHEUMATOID ARTHRITIS
     Dosage: , 1 IN 1 DAY, INTRAVENOUS
     Route: 042
     Dates: start: 20010117
  2. SONATA [Concomitant]
  3. FUROSEMIDE [Concomitant]
  4. AMITRIPTYLINE HCL [Concomitant]
  5. NITRO PATCH(GLYCERYL TRINITRATE) [Concomitant]
  6. PROPOXY-N (DEXTROPROPOXYPHENE NAPSILATE) [Concomitant]
  7. METOPROLOL (METOPROLOL) [Concomitant]
  8. KLOR-CON [Concomitant]
  9. PREMARIN [Concomitant]
  10. PRILOSEC [Concomitant]
  11. FOSAMAX [Concomitant]
  12. ASPIRIN [Concomitant]
  13. CALCIUM (CALCIUM) [Concomitant]
  14. COMBIVENT (COMBIVENT) INHALATION [Concomitant]

REACTIONS (3)
  - BASAL CELL CARCINOMA [None]
  - NON-SMALL CELL LUNG CANCER [None]
  - RECURRENT CANCER [None]
